FAERS Safety Report 5264224-6 (Version None)
Quarter: 2007Q1

REPORT INFORMATION
  Report Type: 
  Country: None (occurrence: None)
  Receive Date: 20070313
  Receipt Date: 20070227
  Transmission Date: 20070707
  Serious: Yes (Death)
  Sender: FDA-Public Use
  Company Number: IT-SHR-IT-2007-006852

PATIENT
  Age: 47 Year
  Sex: Male
  Weight: 81 kg

DRUGS (5)
  1. FLUDARA 50 MG (SH L 573 A) [Suspect]
     Dosage: 50 MG/D
     Route: 042
     Dates: start: 20070202, end: 20070204
  2. CYCLOPHOSPHAMIDE [Suspect]
     Dosage: 475 MG/D
     Route: 042
     Dates: start: 20070202, end: 20070204
  3. ALLOPURINOL [Concomitant]
     Indication: PROPHYLAXIS
     Dosage: 300 UNK, UNK
     Route: 048
     Dates: start: 20070130
  4. SULFAMETHOXAZOLE W/TRIMETHOPRIM [Concomitant]
     Route: 048
     Dates: start: 20070201
  5. VALACYCLOVIR HCL [Concomitant]
     Indication: ANTIVIRAL PROPHYLAXIS
     Dosage: 1000 UNK, UNK
     Dates: start: 20070201

REACTIONS (2)
  - CEREBRAL HAEMORRHAGE [None]
  - THROMBOCYTOPENIA [None]
